FAERS Safety Report 14177429 (Version 1)
Quarter: 2017Q4

REPORT INFORMATION
  Report Type: Spontaneous
  Country: CH (occurrence: CH)
  Receive Date: 20171110
  Receipt Date: 20171110
  Transmission Date: 20180321
  Serious: Yes (Hospitalization, Other)
  Sender: FDA-Public Use
  Company Number: CH-ROCHE-2020977

PATIENT
  Age: 5 Year
  Sex: Male

DRUGS (30)
  1. PIPERACILLIN/TAZOBACTAM [Concomitant]
     Active Substance: PIPERACILLIN SODIUM\TAZOBACTAM SODIUM
  2. MEROPENEM TRIHYDRATE [Concomitant]
     Active Substance: MEROPENEM
  3. SULFAMETHOXAZOLE/TRIMETHOPRIM [Concomitant]
     Active Substance: SULFAMETHOXAZOLE\TRIMETHOPRIM
     Route: 065
  4. BACTRAMIN [Concomitant]
     Active Substance: SULFAMETHOXAZOLE\TRIMETHOPRIM
     Route: 065
  5. AMPHOTERICIN [Concomitant]
     Active Substance: AMPHOTERICIN B
  6. ACYCLOVIR. [Concomitant]
     Active Substance: ACYCLOVIR
  7. COTRIMOXAZOLE [Concomitant]
     Active Substance: SULFAMETHOXAZOLE\TRIMETHOPRIM
     Route: 065
  8. CYCLOPHOSPHAMIDE. [Concomitant]
     Active Substance: CYCLOPHOSPHAMIDE
     Route: 065
  9. CYTARABINE. [Concomitant]
     Active Substance: CYTARABINE
  10. TEICOPLANIN [Concomitant]
     Active Substance: TEICOPLANIN
  11. AMIKACIN [Concomitant]
     Active Substance: AMIKACIN
  12. ACYCLOVIR. [Concomitant]
     Active Substance: ACYCLOVIR
  13. TEICOPLANIN [Concomitant]
     Active Substance: TEICOPLANIN
  14. IBUPROFEN. [Concomitant]
     Active Substance: IBUPROFEN
  15. TOBRAMYCINE [Concomitant]
  16. METHOTREXATE. [Concomitant]
     Active Substance: METHOTREXATE
  17. PREDNISOLONE. [Concomitant]
     Active Substance: PREDNISOLONE
  18. IMMUNIGLOBULIN (IMMUNOGLOBULIN HUMAN NORMAL) [Concomitant]
     Active Substance: HUMAN IMMUNOGLOBULIN G
  19. VORICONAZOLE. [Concomitant]
     Active Substance: VORICONAZOLE
  20. GENTAMICIN. [Concomitant]
     Active Substance: GENTAMICIN
  21. METHYLPREDNISOLONE. [Concomitant]
     Active Substance: METHYLPREDNISOLONE
  22. ACTEMRA [Suspect]
     Active Substance: TOCILIZUMAB
     Indication: CYTOKINE RELEASE SYNDROME
     Dosage: DOSAGE IS UNCERTAIN.
     Route: 065
     Dates: start: 20161224
  23. TISAGENLECLEUCEL. [Concomitant]
     Active Substance: TISAGENLECLEUCEL
     Dosage: DOSAGE IS UNCERTAIN.?REPORTED AS CTL019
     Route: 041
  24. CEFTRIAXONE SODIUM. [Concomitant]
     Active Substance: CEFTRIAXONE SODIUM
     Route: 065
  25. METAMIZOLE [Concomitant]
     Active Substance: METAMIZOLE
  26. VORICONAZOLE. [Concomitant]
     Active Substance: VORICONAZOLE
  27. FLUDARABINE [Concomitant]
     Active Substance: FLUDARABINE PHOSPHATE
  28. PARACETAMOL [Concomitant]
     Active Substance: ACETAMINOPHEN
  29. PIPERACILLIN [Concomitant]
     Active Substance: PIPERACILLIN
  30. CLARITHROMYCIN. [Concomitant]
     Active Substance: CLARITHROMYCIN

REACTIONS (4)
  - Staphylococcal sepsis [Recovered/Resolved]
  - Hydrocephalus [Recovering/Resolving]
  - White blood cell count decreased [Recovered/Resolved]
  - Device related infection [Recovered/Resolved]

NARRATIVE: CASE EVENT DATE: 20170102
